FAERS Safety Report 13502011 (Version 4)
Quarter: 2017Q2

REPORT INFORMATION
  Report Type: Spontaneous
  Country: RU (occurrence: RU)
  Receive Date: 20170502
  Receipt Date: 20170531
  Transmission Date: 20170830
  Serious: Yes (Other)
  Sender: FDA-Public Use
  Company Number: RU-ROCHE-1926944

PATIENT
  Age: 45 Year
  Sex: Female

DRUGS (8)
  1. ACTEMRA [Suspect]
     Active Substance: TOCILIZUMAB
     Dosage: INTRAVENOUS DRIP
     Route: 041
     Dates: start: 2017
  2. TAMOXIFEN [Concomitant]
     Active Substance: TAMOXIFEN
     Indication: BREAST CANCER
     Route: 065
     Dates: start: 20150420
  3. ACTEMRA [Suspect]
     Active Substance: TOCILIZUMAB
     Indication: RHEUMATOID ARTHRITIS
     Dosage: INTRAVENOUS DRIP?UP TO MAY 2010. IN THE FOLLOWING ONCE PER 2 MONTHS.
     Route: 042
     Dates: start: 2010
  4. ACTEMRA [Suspect]
     Active Substance: TOCILIZUMAB
     Dosage: INTRAVENOUS DRIP
     Route: 042
     Dates: start: 20140530
  5. ACTEMRA [Suspect]
     Active Substance: TOCILIZUMAB
     Dosage: INTRAVENOUS DRIP
     Route: 041
     Dates: start: 20140114
  6. ACTEMRA [Suspect]
     Active Substance: TOCILIZUMAB
     Dosage: INTRAVENOUS DRIP
     Route: 041
     Dates: start: 20131029
  7. ACTEMRA [Suspect]
     Active Substance: TOCILIZUMAB
     Dosage: INTRAVENOUS DRIP
     Route: 041
     Dates: start: 20140319
  8. ACTEMRA [Suspect]
     Active Substance: TOCILIZUMAB
     Dosage: INTRAVENOUS DRIP
     Route: 042
     Dates: start: 20150310

REACTIONS (1)
  - Breast cancer [Recovered/Resolved]

NARRATIVE: CASE EVENT DATE: 201408
